FAERS Safety Report 12535415 (Version 1)
Quarter: 2016Q3

REPORT INFORMATION
  Report Type: Spontaneous
  Country: US (occurrence: US)
  Receive Date: 20160707
  Receipt Date: 20160707
  Transmission Date: 20161109
  Serious: No
  Sender: FDA-Public Use
  Company Number: US-AUROBINDO-AUR-APU-2016-04110

PATIENT
  Sex: Female

DRUGS (1)
  1. CLOPIDOGREL [Suspect]
     Active Substance: CLOPIDOGREL BISULFATE
     Indication: ANEURYSM
     Dosage: 75 MG, UNK
     Route: 048

REACTIONS (2)
  - Epistaxis [Recovered/Resolved]
  - Oral mucosal blistering [Recovered/Resolved]
